FAERS Safety Report 25431442 (Version 1)
Quarter: 2025Q2

REPORT INFORMATION
  Report Type: Spontaneous
  Country: PL (occurrence: PL)
  Receive Date: 20250613
  Receipt Date: 20250613
  Transmission Date: 20250717
  Serious: Yes (Other)
  Sender: ALEXION PHARMACEUTICALS
  Company Number: PL-AstraZeneca-CH-00888080A

PATIENT

DRUGS (1)
  1. TEZSPIRE [Suspect]
     Active Substance: TEZEPELUMAB-EKKO
     Indication: Asthma

REACTIONS (3)
  - Tracheomalacia [Recovered/Resolved]
  - Infective exacerbation of asthma [Recovered/Resolved]
  - Obstructive sleep apnoea syndrome [Recovered/Resolved]
